FAERS Safety Report 6679579-5 (Version None)
Quarter: 2010Q2

REPORT INFORMATION
  Report Type: 
  Country: None (occurrence: None)
  Receive Date: 20100409
  Receipt Date: 20100331
  Transmission Date: 20101027
  Serious: Yes (Hospitalization)
  Sender: FDA-Public Use
  Company Number: A-US2010-35387

PATIENT
  Age: 61 Year
  Sex: Female

DRUGS (4)
  1. TRACLEER [Suspect]
     Indication: PULMONARY ARTERIAL HYPERTENSION
     Dosage: ORAL
     Route: 048
     Dates: start: 20070619
  2. VENTAVIS [Suspect]
     Indication: PULMONARY ARTERIAL HYPERTENSION
     Dosage: RESPIRATORY
     Route: 055
     Dates: start: 20091014
  3. VIAGRA [Concomitant]
  4. COUMADIN [Concomitant]

REACTIONS (4)
  - DEHYDRATION [None]
  - HYPOTENSION [None]
  - PNEUMONIA [None]
  - SYNCOPE [None]
